FAERS Safety Report 6128188-5 (Version None)
Quarter: 2009Q1

REPORT INFORMATION
  Report Type: 
  Country: None (occurrence: None)
  Receive Date: 20090323
  Receipt Date: 20090310
  Transmission Date: 20090719
  Serious: Yes (Hospitalization, Other)
  Sender: FDA-Public Use
  Company Number: US-ROCHE-614880

PATIENT
  Sex: Male
  Weight: 83.9 kg

DRUGS (7)
  1. PEG-INTERFERON A-2A (RO 25-8310) [Suspect]
     Dosage: FORM: PRE FILLED SYRINGE.
     Route: 058
     Dates: start: 20090109
  2. RIBAPAK [Suspect]
     Dosage: DIVIDED DOSES, FREQUENCY: EVERY DAY
     Route: 048
     Dates: start: 20090109
  3. LISINOPRIL [Concomitant]
     Indication: HYPERTENSION
     Route: 048
  4. ZANTAC [Concomitant]
     Route: 048
  5. MAG-OX [Concomitant]
     Route: 048
  6. OSCAL [Concomitant]
     Route: 048
  7. ALBUTEROL [Concomitant]
     Dosage: AS PER NEEDED
     Route: 055

REACTIONS (9)
  - ABDOMINAL PAIN UPPER [None]
  - CONFUSIONAL STATE [None]
  - EPISTAXIS [None]
  - HAEMOGLOBIN DECREASED [None]
  - PANCYTOPENIA [None]
  - PYREXIA [None]
  - RED BLOOD CELL COUNT DECREASED [None]
  - STAPHYLOCOCCAL BACTERAEMIA [None]
  - WHITE BLOOD CELL COUNT DECREASED [None]
